FAERS Safety Report 22348657 (Version 1)
Quarter: 2023Q2

REPORT INFORMATION
  Report Type: Other
  Country: DE (occurrence: DE)
  Receive Date: 20230522
  Receipt Date: 20230522
  Transmission Date: 20230721
  Serious: Yes (Death, Hospitalization, Other)
  Sender: FDA-Public Use
  Company Number: DE-DEXPHARM-20231011

PATIENT

DRUGS (6)
  1. BUSULFAN [Suspect]
     Active Substance: BUSULFAN
     Indication: Product used for unknown indication
     Dosage: HE RECEIVED CONDITIONING REGIMEN WITH FLUDARABINE [FLUDARABIN], IV BUSULFAN 3 DAYS, ALEMTUZUMAB
     Route: 065
  2. METHOTREXATE [Suspect]
     Active Substance: METHOTREXATE
     Indication: Product used for unknown indication
     Dosage: PROPHYLAXIS WITH CICLOSPORIN [CYCLOSPORIN A], METHOTREXATE FOR PREVENTION OF GVHD.HE RECEIVED GVHD T
     Route: 065
  3. FLUDARABINE [Suspect]
     Active Substance: FLUDARABINE PHOSPHATE
     Indication: Product used for unknown indication
     Dosage: HE RECEIVED CONDITIONING REGIMEN WITH FLUDARABINE [FLUDARABIN], IV BUSULFAN 3 DAYS, ALEMTUZUMAB
     Route: 065
  4. ALEMTUZUMAB [Suspect]
     Active Substance: ALEMTUZUMAB
     Indication: Product used for unknown indication
     Dosage: HE RECEIVED CONDITIONING REGIMEN WITH FLUDARABINE [FLUDARABIN], IV BUSULFAN 3 DAYS, ALEMTUZUMAB
     Route: 065
  5. PREDNISOLONE [Suspect]
     Active Substance: PREDNISOLONE
     Indication: Product used for unknown indication
     Dosage: HE RECEIVED GVHD TREATMENT WITH CICLOSPORIN, PREDNISOLONE, METHYLPREDNISOLONE, TACROLIMUS, INFLIXIMA
     Route: 065
  6. CYCLOSPORINE [Suspect]
     Active Substance: CYCLOSPORINE
     Indication: Product used for unknown indication
     Dosage: PROPHYLAXIS WITH CICLOSPORIN, MYCOPHENOLATE MOFETIL AND PREDNISONE FOR PREVENTION OF GVHD
     Route: 065

REACTIONS (8)
  - Drug ineffective [Fatal]
  - Pulmonary haemorrhage [Fatal]
  - Bronchopulmonary aspergillosis [Fatal]
  - Lactobacillus infection [Fatal]
  - Aspergillus infection [Fatal]
  - Staphylococcal infection [Fatal]
  - Adenovirus infection [Fatal]
  - BK virus infection [Fatal]
